FAERS Safety Report 7315171-7 (Version None)
Quarter: 2011Q1

REPORT INFORMATION
  Report Type: 
  Country: None (occurrence: None)
  Receive Date: 20110225
  Receipt Date: 20110222
  Transmission Date: 20110831
  Serious: Yes (Death, Hospitalization)
  Sender: FDA-Public Use
  Company Number: DE-JNJFOC-20110205737

PATIENT
  Sex: Female

DRUGS (3)
  1. RISPERDAL CONSTA [Suspect]
     Route: 030
  2. OLANZAPINE [Concomitant]
     Route: 065
  3. RISPERDAL CONSTA [Suspect]
     Indication: PRODUCT USED FOR UNKNOWN INDICATION
     Route: 030

REACTIONS (7)
  - ABDOMINAL PAIN [None]
  - ANGINA PECTORIS [None]
  - VOMITING [None]
  - INTESTINAL INFARCTION [None]
  - ALTERED STATE OF CONSCIOUSNESS [None]
  - ABDOMINAL DISTENSION [None]
  - OEDEMA PERIPHERAL [None]
